FAERS Safety Report 5968289-5 (Version None)
Quarter: 2008Q4

REPORT INFORMATION
  Report Type: 
  Country: None (occurrence: None)
  Receive Date: 20081126
  Receipt Date: 20081117
  Transmission Date: 20090506
  Serious: Yes (Other)
  Sender: FDA-Public Use
  Company Number: ES-ASTRAZENECA-2008AC02977

PATIENT
  Age: 51 Year
  Sex: Male

DRUGS (3)
  1. SEROQUEL [Suspect]
     Indication: DEPRESSION
     Route: 048
     Dates: start: 20080301, end: 20080516
  2. VASTAT FLAS [Suspect]
     Indication: DEPRESSION
     Route: 048
     Dates: start: 20080301, end: 20080516
  3. COLME-1 [Concomitant]
     Indication: ALCOHOLISM
     Dosage: 45 DROPS DAILY
     Route: 048
     Dates: start: 20080301, end: 20080516

REACTIONS (2)
  - BONE MARROW FAILURE [None]
  - RASH [None]
